FAERS Safety Report 23351237 (Version 4)
Quarter: 2024Q1

REPORT INFORMATION
  Report Type: Spontaneous
  Country: US (occurrence: US)
  Receive Date: 20231229
  Receipt Date: 20240124
  Transmission Date: 20240410
  Serious: Yes (Hospitalization, Other)
  Sender: FDA-Public Use
  Company Number: US-PFIZER INC-PV202300206987

PATIENT
  Age: 7 Decade
  Sex: Female

DRUGS (20)
  1. FLUCONAZOLE [Interacting]
     Active Substance: FLUCONAZOLE
     Indication: Infection prophylaxis
     Dosage: 200 MG, DAILY, HOSPITAL DAY 4
     Route: 048
  2. FLUCONAZOLE [Interacting]
     Active Substance: FLUCONAZOLE
     Dosage: 200 MG, DAILY, HOSPITAL DAY 5
     Route: 048
  3. FLUCONAZOLE [Interacting]
     Active Substance: FLUCONAZOLE
     Dosage: 200 MG, DAILY, HOSPITAL DAY 6
     Route: 048
  4. FLUCONAZOLE [Interacting]
     Active Substance: FLUCONAZOLE
     Dosage: 200 MG, DAILY, HOSPITAL DAY 7
     Route: 048
  5. FLUCONAZOLE [Interacting]
     Active Substance: FLUCONAZOLE
     Dosage: 400 MG, DAILY, HOSPITAL DAY 8
     Route: 048
  6. FLUCONAZOLE [Interacting]
     Active Substance: FLUCONAZOLE
     Dosage: 400 MG, DAILY, HOSPITAL DAY 9
     Route: 048
  7. CIPROFLOXACIN [Interacting]
     Active Substance: CIPROFLOXACIN
     Indication: Infection prophylaxis
     Dosage: 500 MG, DAILY, HOSPITAL DAY 4
     Route: 048
  8. CIPROFLOXACIN [Interacting]
     Active Substance: CIPROFLOXACIN
     Dosage: 500 MG, DAILY, HOSPITAL DAY 5
     Route: 048
  9. CIPROFLOXACIN [Interacting]
     Active Substance: CIPROFLOXACIN
     Dosage: 500 MG, DAILY, HOSPITAL DAY 6
     Route: 048
  10. CIPROFLOXACIN [Interacting]
     Active Substance: CIPROFLOXACIN
     Dosage: 750 MG, DAILY, HOSPITAL DAY 7
     Route: 048
  11. CIPROFLOXACIN [Interacting]
     Active Substance: CIPROFLOXACIN
     Dosage: 1000 MG, DAILY, HOSPITAL DAY 8
     Route: 048
  12. CIPROFLOXACIN [Interacting]
     Active Substance: CIPROFLOXACIN
     Dosage: 500 MG, DAILY, HOSPITAL DAY 9
     Route: 048
  13. CIPROFLOXACIN [Interacting]
     Active Substance: CIPROFLOXACIN
     Dosage: 250 MG, DAILY
     Route: 048
  14. AVATROMBOPAG [Interacting]
     Active Substance: AVATROMBOPAG
     Indication: Thrombocytopenia
     Dosage: 20 MG, DAILY, HOSPITAL DAY 4
     Route: 048
  15. AVATROMBOPAG [Interacting]
     Active Substance: AVATROMBOPAG
     Dosage: 20 MG, DAILY, HOSPITAL DAY 5
     Route: 048
  16. AVATROMBOPAG [Interacting]
     Active Substance: AVATROMBOPAG
     Dosage: 20 MG, DAILY, HOSPITAL DAY 6
     Route: 048
  17. AVATROMBOPAG [Interacting]
     Active Substance: AVATROMBOPAG
     Dosage: 20 MG, DAILY, HOSPITAL DAY 7
     Route: 048
  18. AVATROMBOPAG [Interacting]
     Active Substance: AVATROMBOPAG
     Dosage: 20 MG, DAILY, HOSPITAL DAY 8
     Route: 048
  19. AVATROMBOPAG [Interacting]
     Active Substance: AVATROMBOPAG
     Dosage: 20 MG, DAILY, HOSPITAL DAY 9
     Route: 048
  20. AVATROMBOPAG [Interacting]
     Active Substance: AVATROMBOPAG
     Dosage: 40 MG, DAILY
     Route: 048

REACTIONS (1)
  - Inhibitory drug interaction [Unknown]
